FAERS Safety Report 10967484 (Version 11)
Quarter: 2015Q4

REPORT INFORMATION
  Report Type: Spontaneous
  Country: US (occurrence: US)
  Receive Date: 20150330
  Receipt Date: 20151118
  Transmission Date: 20160304
  Serious: Yes (Hospitalization, Other)
  Sender: FDA-Public Use
  Company Number: US-PFIZER INC-2015106534

PATIENT
  Age: 71 Year
  Sex: Male
  Weight: 93.42 kg

DRUGS (27)
  1. SUTENT [Suspect]
     Active Substance: SUNITINIB MALATE
     Dosage: 50 MG, CYCLIC (FOR 2 DAYS ON / 1 DAY OFF, FOR TOTAL OF 28 DAYS ON AND THEN 14 DAYS OFF)
     Dates: start: 201504
  2. SUTENT [Suspect]
     Active Substance: SUNITINIB MALATE
     Dosage: 50 MG, CYCLIC (FOR 5 DAYS ON AND 2 DAYS OFF, FOR TOTAL OF 28 DAYS ON AND THEN 14 DAYS OFF)
  3. VITAMIN B COMPLEX [Concomitant]
     Active Substance: CYANOCOBALAMIN\DEXPANTHENOL\NIACINAMIDE\PYRIDOXINE HYDROCHLORIDE\RIBOFLAVIN 5^-PHOSPHATE SODIUM\THIAMINE HYDROCHLORIDE\VITAMIN B COMPLEX
     Dosage: UNK
  4. ASPIRIN. [Concomitant]
     Active Substance: ASPIRIN
     Dosage: 81 MG, UNK
     Route: 048
  5. GABAPENTIN. [Concomitant]
     Active Substance: GABAPENTIN
     Dosage: 300 MG, UNK
     Route: 048
  6. CRESTOR [Concomitant]
     Active Substance: ROSUVASTATIN CALCIUM
     Dosage: 20 MG, 1X/DAY
     Route: 048
  7. AMLODIPINE [Concomitant]
     Active Substance: AMLODIPINE BESYLATE
     Dosage: 5 MG, 1X/DAY
     Route: 048
  8. MAGNESIUM OXIDE. [Concomitant]
     Active Substance: MAGNESIUM OXIDE
     Dosage: UNK
  9. ASPIRIN. [Concomitant]
     Active Substance: ASPIRIN
     Dosage: 80 MG, 1X/DAY
     Route: 048
  10. SUTENT [Suspect]
     Active Substance: SUNITINIB MALATE
     Indication: METASTATIC RENAL CELL CARCINOMA
     Dosage: 50 MG, CYCLIC (DAILY FOR 28 DAYS ON /14 DAYS OFF)
     Route: 048
     Dates: start: 20150226
  11. ROPINIROLE. [Concomitant]
     Active Substance: ROPINIROLE
     Dosage: UNK
  12. MELOXICAM. [Concomitant]
     Active Substance: MELOXICAM
     Dosage: UNK
  13. OMEGA-3 ACIDS [Concomitant]
     Active Substance: OMEGA-3 FATTY ACIDS
     Dosage: UNK
  14. FISH OIL [Concomitant]
     Active Substance: FISH OIL
     Dosage: UNK
  15. INDAPAMIDE. [Concomitant]
     Active Substance: INDAPAMIDE
     Indication: HYPERTENSION
     Dosage: 1.25 MG, 1X/DAY
  16. HYDROCHLOROTHIAZIDE. [Concomitant]
     Active Substance: HYDROCHLOROTHIAZIDE
     Dosage: 12.5 MG, UNK
     Route: 048
  17. ZOFRAN [Concomitant]
     Active Substance: ONDANSETRON HYDROCHLORIDE
     Dosage: UNK
  18. TYLENOL [Concomitant]
     Active Substance: ACETAMINOPHEN
     Dosage: 500 MG, UNK
     Route: 048
  19. IRBESARTAN. [Concomitant]
     Active Substance: IRBESARTAN
     Dosage: UNK
  20. CRESTOR [Concomitant]
     Active Substance: ROSUVASTATIN CALCIUM
     Dosage: 40 MG, UNK
     Route: 048
  21. AVAPRO [Concomitant]
     Active Substance: IRBESARTAN
     Dosage: 300 MG, 1X/DAY
     Route: 048
  22. LYRICA [Concomitant]
     Active Substance: PREGABALIN
  23. MELATONIN [Concomitant]
     Active Substance: MELATONIN
     Dosage: UNK
  24. PANTOPRAZOLE [Concomitant]
     Active Substance: PANTOPRAZOLE SODIUM
     Indication: GASTROOESOPHAGEAL REFLUX DISEASE
     Dosage: 40 MG, UNK
     Route: 048
  25. LOVENOX [Concomitant]
     Active Substance: ENOXAPARIN SODIUM
     Dosage: UNK, DAILY
     Dates: end: 20150630
  26. SUTENT [Suspect]
     Active Substance: SUNITINIB MALATE
     Dosage: 50 MG, UNK (28 DAYS STRAIGHT, 50MG CAPSULES, ONE A DAY BY MOUTH, AT 4 O^CLOCK EVERYDAY)
     Dates: start: 20150302
  27. WARFARIN [Concomitant]
     Active Substance: WARFARIN

REACTIONS (34)
  - Clostridium difficile colitis [Recovered/Resolved]
  - Abasia [Recovering/Resolving]
  - Insomnia [Unknown]
  - Pain in extremity [Recovered/Resolved]
  - Disease progression [Unknown]
  - Haemorrhoidal haemorrhage [Recovering/Resolving]
  - Myalgia [Unknown]
  - Tremor [Unknown]
  - Pelvic pain [Unknown]
  - Neck pain [Recovering/Resolving]
  - Diarrhoea [Not Recovered/Not Resolved]
  - Thrombosis [Unknown]
  - Nausea [Recovering/Resolving]
  - Anxiety [Unknown]
  - Gastric disorder [Unknown]
  - Scleral discolouration [Unknown]
  - Blister [Recovered/Resolved]
  - Pyrexia [Recovered/Resolved]
  - Deep vein thrombosis [Unknown]
  - Pulmonary embolism [Recovered/Resolved]
  - Sensory loss [Unknown]
  - Stomatitis [Recovered/Resolved]
  - Muscular weakness [Unknown]
  - Arthralgia [Unknown]
  - Skin fissures [Unknown]
  - Hyperkeratosis [Not Recovered/Not Resolved]
  - Bone pain [Recovered/Resolved]
  - Fatigue [Unknown]
  - Skin induration [Unknown]
  - Metastatic renal cell carcinoma [Unknown]
  - Muscle spasms [Unknown]
  - Dry mouth [Unknown]
  - Vomiting [Unknown]
  - Hypotension [Unknown]

NARRATIVE: CASE EVENT DATE: 2015
